FAERS Safety Report 15147216 (Version 2)
Quarter: 2018Q4

REPORT INFORMATION
  Report Type: Spontaneous
  Country: DE (occurrence: DE)
  Receive Date: 20180716
  Receipt Date: 20181016
  Transmission Date: 20190204
  Serious: Yes (Death, Life-Threatening, Hospitalization, Other)
  Sender: FDA-Public Use
  Company Number: DE-TEVA-2018-DE-925845

PATIENT
  Age: 39 Year
  Sex: Male

DRUGS (7)
  1. MELPERON [Suspect]
     Active Substance: MELPERONE
     Dosage: 25 MILLIGRAM DAILY;
     Route: 048
     Dates: start: 20130301, end: 20171127
  2. TRIMIPRAMIN [Suspect]
     Active Substance: TRIMIPRAMINE MALEATE
     Dosage: 100 MILLIGRAM DAILY;
     Route: 048
     Dates: start: 20161127
  3. RISPERDAL CONSTA [Suspect]
     Active Substance: RISPERIDONE
     Route: 030
     Dates: start: 20120101, end: 20161127
  4. SIMVASTATIN. [Concomitant]
     Active Substance: SIMVASTATIN
     Dosage: 40 MILLIGRAM DAILY;
     Route: 048
     Dates: start: 20100101, end: 20161127
  5. LORAZEPAM. [Concomitant]
     Active Substance: LORAZEPAM
     Dosage: 0.5-2 MG ON DEMAND
     Route: 048
  6. RAMIPRIL. [Concomitant]
     Active Substance: RAMIPRIL
     Dosage: 10 MILLIGRAM DAILY;
     Route: 048
     Dates: start: 20130101, end: 20161127
  7. CLOZAPIN [Suspect]
     Active Substance: CLOZAPINE
     Dosage: 325 MILLIGRAM DAILY;
     Route: 048
     Dates: start: 20130301, end: 20161127

REACTIONS (1)
  - Death [Fatal]

NARRATIVE: CASE EVENT DATE: 20161127
